FAERS Safety Report 9876695 (Version 2)
Quarter: 2014Q1

REPORT INFORMATION
  Report Type: Spontaneous
  Country: US (occurrence: US)
  Receive Date: 20140206
  Receipt Date: 20140206
  Transmission Date: 20141002
  Serious: No
  Sender: FDA-Public Use
  Company Number: US-ACORDA-ACO_38072_2013

PATIENT
  Sex: Female

DRUGS (1)
  1. AMPYRA [Suspect]
     Indication: PRODUCT USED FOR UNKNOWN INDICATION
     Dosage: 10 MG, UNK
     Route: 065
     Dates: start: 2013, end: 2013

REACTIONS (6)
  - Abnormal dreams [Unknown]
  - Burning sensation [Unknown]
  - Hypoaesthesia [Unknown]
  - Dry mouth [Unknown]
  - Insomnia [Unknown]
  - Dizziness [Unknown]
